FAERS Safety Report 11506596 (Version 3)
Quarter: 2016Q1

REPORT INFORMATION
  Report Type: Report from Study
  Country: US (occurrence: JP)
  Receive Date: 20150915
  Receipt Date: 20160115
  Transmission Date: 20160525
  Serious: Yes (Death, Hospitalization, Other)
  Sender: FDA-Public Use
  Company Number: JP-009507513-1509JPN006746

PATIENT
  Age: 48 Year
  Sex: Male
  Weight: 77.1 kg

DRUGS (4)
  1. DUODOPA [Suspect]
     Active Substance: CARBIDOPA\LEVODOPA
     Indication: PARKINSON^S DISEASE
     Dosage: 46.8 ML, QD: ROUTE: PERCUTANEOUS J-TUBE
     Route: 003
     Dates: start: 20140612
  2. CARBIDOPA (+) LEVODOPA [Suspect]
     Active Substance: CARBIDOPA\LEVODOPA
     Indication: PARKINSON^S DISEASE
     Dosage: UNK
     Route: 048
     Dates: start: 20140725, end: 20150722
  3. NEUROVITAN (CYANOCOBALAMIN (+) NIACINAMIDE (+) PYRIDOXINE HYDROCHLORID [Concomitant]
     Indication: VITAMIN B12 DEFICIENCY
     Dosage: 1 DF, BID
     Route: 048
     Dates: start: 20150423, end: 20150721
  4. DUODOPA [Suspect]
     Active Substance: CARBIDOPA\LEVODOPA
     Dosage: CONTINOUS DOSE: 2.8 ML/HOUR: ROUTE: PERCUTANEOUS J-TUBE
     Route: 003
     Dates: start: 20150724, end: 20150725

REACTIONS (3)
  - Delirium [Recovered/Resolved]
  - Drowning [Fatal]
  - Adjustment disorder with depressed mood [Unknown]

NARRATIVE: CASE EVENT DATE: 20150720
